FAERS Safety Report 14927925 (Version 1)
Quarter: 2018Q2

REPORT INFORMATION
  Report Type: Spontaneous
  Country: CN (occurrence: CN)
  Receive Date: 20180523
  Receipt Date: 20180523
  Transmission Date: 20180711
  Serious: Yes (Other)
  Sender: FDA-Public Use
  Company Number: CN-VIIV HEALTHCARE LIMITED-CN2018GSK087117

PATIENT
  Age: 53 Year
  Sex: Male

DRUGS (4)
  1. HEPTODIN [Suspect]
     Active Substance: LAMIVUDINE
     Dosage: 1 DF, QD, TABLET
  2. HEPTODIN [Suspect]
     Active Substance: LAMIVUDINE
     Dosage: 0.5 DF, QD, TABLET
  3. HEPTODIN [Suspect]
     Active Substance: LAMIVUDINE
     Dosage: 0.5 DF, QOD, TABLET
  4. HEPTODIN [Suspect]
     Active Substance: LAMIVUDINE
     Indication: HEPATITIS B
     Dosage: 1 DF, QD, TABLET
     Route: 048
     Dates: start: 1998

REACTIONS (6)
  - Abdominal discomfort [Recovering/Resolving]
  - Incorrect dosage administered [Unknown]
  - Listless [Recovering/Resolving]
  - Product use issue [Unknown]
  - Cachexia [Recovering/Resolving]
  - Dyspepsia [Recovering/Resolving]
